FAERS Safety Report 21800900 (Version 1)
Quarter: 2022Q4

REPORT INFORMATION
  Report Type: Spontaneous
  Country: FR (occurrence: FR)
  Receive Date: 20221230
  Receipt Date: 20221230
  Transmission Date: 20230113
  Serious: Yes (Hospitalization, Other)
  Sender: FDA-Public Use
  Company Number: None

PATIENT
  Age: 49 Year
  Sex: Male
  Weight: 70 kg

DRUGS (2)
  1. YERVOY [Suspect]
     Active Substance: IPILIMUMAB
     Indication: Nodular melanoma
     Route: 042
     Dates: start: 20220819, end: 20221021
  2. OPDIVO [Suspect]
     Active Substance: NIVOLUMAB
     Indication: Nodular melanoma
     Route: 042
     Dates: start: 20220819, end: 20221021

REACTIONS (2)
  - Autoimmune myositis [Recovered/Resolved]
  - Lymphocytic hypophysitis [Not Recovered/Not Resolved]

NARRATIVE: CASE EVENT DATE: 20220819
